FAERS Safety Report 14605234 (Version 2)
Quarter: 2018Q1

REPORT INFORMATION
  Report Type: Report from Study
  Country: NL (occurrence: NL)
  Receive Date: 20180306
  Receipt Date: 20180309
  Transmission Date: 20180509
  Serious: Yes (Hospitalization)
  Sender: FDA-Public Use
  Company Number: NL-TAIHO ONCOLOGY INC-JPTT180197

PATIENT
  Age: 70 Year
  Sex: Male
  Weight: 84 kg

DRUGS (19)
  1. BEVACIZUMAB 5MG/KG - CONTROL GROUP [Suspect]
     Active Substance: BEVACIZUMAB
     Dosage: 425 MG (5 MG/KG) ON DAY 1 AND 15 OF EACH 28-DAY CYCLE
     Route: 042
     Dates: start: 20180207
  2. LOSARTAN POTASSIUM. [Concomitant]
     Active Substance: LOSARTAN POTASSIUM
     Indication: HYPERTENSION
     Dosage: 50 MG, QD
     Route: 048
     Dates: start: 2016, end: 20161226
  3. LONSURF [Suspect]
     Active Substance: TIPIRACIL HYDROCHLORIDE\TRIFLURIDINE
     Dosage: 70 MG (35MG/M2) BID, ON DAYS 1-5 AND 8-12 OF EACH 28-DAY CYCLE
     Route: 048
     Dates: start: 20170816, end: 20170827
  4. BEVACIZUMAB 5MG/KG - CONTROL GROUP [Suspect]
     Active Substance: BEVACIZUMAB
     Dosage: 425 MG (5 MG/KG) ON DAY 1 AND 15 OF EACH 28-DAY CYCLE
     Route: 042
     Dates: start: 20170920, end: 20171004
  5. BEVACIZUMAB 5MG/KG - CONTROL GROUP [Suspect]
     Active Substance: BEVACIZUMAB
     Dosage: 425 MG (5 MG/KG) ON DAY 1 AND 15 OF EACH 28-DAY CYCLE
     Route: 042
     Dates: start: 20180103, end: 20180117
  6. BEVACIZUMAB 5MG/KG - CONTROL GROUP [Suspect]
     Active Substance: BEVACIZUMAB
     Dosage: 425 MG (5 MG/KG) ON DAY 1 AND 15 OF EACH 28-DAY CYCLE
     Route: 042
     Dates: start: 20170712, end: 20170726
  7. LONSURF [Suspect]
     Active Substance: TIPIRACIL HYDROCHLORIDE\TRIFLURIDINE
     Dosage: 70 MG (35MG/M2) BID, ON DAYS 1-5 AND 8-12 OF EACH 28-DAY CYCLE
     Route: 048
     Dates: start: 20170920, end: 20171001
  8. BEVACIZUMAB 5MG/KG - CONTROL GROUP [Suspect]
     Active Substance: BEVACIZUMAB
     Indication: COLORECTAL CANCER METASTATIC
     Dosage: 425 MG (5 MG/KG) ON DAY 1 AND 15 OF EACH 28-DAY CYCLE
     Route: 042
     Dates: start: 20161221, end: 20170621
  9. TAMSULOSIN HYDROCHLORIDE. [Concomitant]
     Active Substance: TAMSULOSIN HYDROCHLORIDE
     Indication: URINARY RETENTION
     Dosage: 0.4 MG, QD
     Route: 048
     Dates: start: 201512
  10. LONSURF [Suspect]
     Active Substance: TIPIRACIL HYDROCHLORIDE\TRIFLURIDINE
     Dosage: 70 MG (35MG/M2) BID, ON DAYS 1-5 AND 8-12 OF EACH 28-DAY CYCLE
     Route: 048
     Dates: start: 20180103, end: 20180114
  11. LOSARTAN POTASSIUM. [Concomitant]
     Active Substance: LOSARTAN POTASSIUM
     Dosage: 100 MG, QD
     Route: 048
     Dates: start: 20161227
  12. LONSURF [Suspect]
     Active Substance: TIPIRACIL HYDROCHLORIDE\TRIFLURIDINE
     Dosage: 70 MG (35MG/M2) BID, ON DAYS 1-5 AND 8-12 OF EACH 28-DAY CYCLE
     Route: 048
     Dates: start: 20171025, end: 20171105
  13. BEVACIZUMAB 5MG/KG - CONTROL GROUP [Suspect]
     Active Substance: BEVACIZUMAB
     Dosage: 425 MG (5 MG/KG) ON DAY 1 AND 15 OF EACH 28-DAY CYCLE
     Route: 042
     Dates: start: 20170816, end: 20170830
  14. HYDROCHLOROTHIAZIDE. [Concomitant]
     Active Substance: HYDROCHLOROTHIAZIDE
     Indication: HYPERTENSION
     Dosage: 25 MG, QD
     Route: 048
     Dates: start: 20161230
  15. LONSURF [Suspect]
     Active Substance: TIPIRACIL HYDROCHLORIDE\TRIFLURIDINE
     Indication: COLORECTAL CANCER METASTATIC
     Dosage: 70 MG (35MG/M2) BID, ON DAYS 1-5 AND 8-12 OF EACH 28-DAY CYCLE
     Route: 048
     Dates: start: 20161221, end: 20170618
  16. LONSURF [Suspect]
     Active Substance: TIPIRACIL HYDROCHLORIDE\TRIFLURIDINE
     Dosage: 70 MG (35MG/M2) BID, ON DAYS 1-5 AND 8-12 OF EACH 28-DAY CYCLE
     Route: 048
     Dates: start: 20170712, end: 20170723
  17. LONSURF [Suspect]
     Active Substance: TIPIRACIL HYDROCHLORIDE\TRIFLURIDINE
     Dosage: 70 MG (35MG/M2) BID, ON DAYS 1-5 AND 8-12 OF EACH 28-DAY CYCLE
     Route: 048
     Dates: start: 20171129, end: 20171210
  18. BEVACIZUMAB 5MG/KG - CONTROL GROUP [Suspect]
     Active Substance: BEVACIZUMAB
     Dosage: 425 MG (5 MG/KG) ON DAY 1 AND 15 OF EACH 28-DAY CYCLE
     Route: 042
     Dates: start: 20171025, end: 20171108
  19. BEVACIZUMAB 5MG/KG - CONTROL GROUP [Suspect]
     Active Substance: BEVACIZUMAB
     Dosage: 425 MG (5 MG/KG) ON DAY 1 AND 15 OF EACH 28-DAY CYCLE
     Route: 042
     Dates: start: 20171129, end: 20171213

REACTIONS (1)
  - Gastroenteritis norovirus [Recovering/Resolving]

NARRATIVE: CASE EVENT DATE: 20180218
